FAERS Safety Report 6180917-0 (Version None)
Quarter: 2009Q2

REPORT INFORMATION
  Report Type: 
  Country: None (occurrence: None)
  Receive Date: 20090430
  Receipt Date: 20090130
  Transmission Date: 20091009
  Serious: No
  Sender: FDA-Public Use
  Company Number: 271078

PATIENT
  Age: 93 Year
  Sex: Female

DRUGS (1)
  1. LUCENTIS [Suspect]
     Indication: MACULAR DEGENERATION
     Dosage: 0.05 ML, 1/MONTH, INTRAVITREAL
     Dates: start: 20081020, end: 20081021

REACTIONS (1)
  - IRITIS [None]
